FAERS Safety Report 6237296-X (Version None)
Quarter: 2009Q2

REPORT INFORMATION
  Report Type: 
  Country: None (occurrence: None)
  Receive Date: 20090619
  Receipt Date: 20090610
  Transmission Date: 20091009
  Serious: Yes (Hospitalization, Other)
  Sender: FDA-Public Use
  Company Number: JP-PFIZER INC-2009226535

PATIENT
  Age: 75 Year

DRUGS (7)
  1. LIPITOR [Suspect]
     Indication: HYPERCHOLESTEROLAEMIA
     Dosage: 5 MG, 1X/DAY
     Route: 048
     Dates: end: 20090610
  2. TORASEMIDE [Suspect]
     Indication: OEDEMA DUE TO CARDIAC DISEASE
     Dosage: 4 MG, 1X/DAY
     Route: 048
     Dates: start: 20090527, end: 20090609
  3. FERROMIA [Concomitant]
     Indication: ANAEMIA
     Dosage: UNK
     Route: 048
  4. MUCOSTA [Concomitant]
     Dosage: UNK
     Route: 048
  5. WARFARIN [Concomitant]
     Indication: EMBOLISM
     Route: 048
     Dates: start: 20090521, end: 20090609
  6. LAC B [Concomitant]
     Dosage: UNK
     Route: 048
  7. BROTIZOLAM [Concomitant]
     Dosage: UNK
     Route: 048

REACTIONS (3)
  - OEDEMA DUE TO CARDIAC DISEASE [None]
  - PLATELET COUNT DECREASED [None]
  - POST PROCEDURAL HAEMORRHAGE [None]
